FAERS Safety Report 24630258 (Version 1)
Quarter: 2024Q4

REPORT INFORMATION
  Report Type: Spontaneous
  Country: DE (occurrence: DE)
  Receive Date: 20241118
  Receipt Date: 20241118
  Transmission Date: 20250114
  Serious: Yes (Other)
  Sender: ALVOGEN
  Company Number: DE-THERAMEX-2024003108

PATIENT
  Age: 71 Year
  Sex: Female

DRUGS (1)
  1. TERIPARATIDE [Suspect]
     Active Substance: TERIPARATIDE
     Indication: Osteoporosis
     Dosage: ONE INJECTION PER DAY?20 MIKROGRAMM/80 MIKROLITER
     Route: 058
     Dates: start: 20241018, end: 20241104

REACTIONS (3)
  - Loss of consciousness [Unknown]
  - Tachycardia [Unknown]
  - Dizziness [Unknown]

NARRATIVE: CASE EVENT DATE: 20241019
